FAERS Safety Report 7536315-8 (Version None)
Quarter: 2011Q2

REPORT INFORMATION
  Report Type: 
  Country: None (occurrence: None)
  Receive Date: 20110602
  Receipt Date: 20110518
  Transmission Date: 20111010
  Serious: Yes (Hospitalization, Other)
  Sender: FDA-Public Use
  Company Number: AUR-APL-2011-01749

PATIENT
  Age: 72 Year
  Sex: Female

DRUGS (4)
  1. ASPIRIN [Suspect]
     Dosage: 100 MG, DAILY
  2. ENALAPRIL MALEATE [Suspect]
     Dosage: 5 MG, DAILY
  3. METFORMIN HCL [Suspect]
     Dosage: 850MG-Q12H
  4. FUROSEMIDE [Suspect]
     Dosage: 20 MG, DAILY

REACTIONS (16)
  - ELECTROCARDIOGRAM QRS COMPLEX PROLONGED [None]
  - HYPOTENSION [None]
  - HAEMODIALYSIS [None]
  - HYPERKALAEMIA [None]
  - ABDOMINAL DISCOMFORT [None]
  - ELECTROCARDIOGRAM P WAVE ABNORMAL [None]
  - VOMITING [None]
  - HYPOVOLAEMIA [None]
  - LACTIC ACIDOSIS [None]
  - RENAL FAILURE ACUTE [None]
  - PAIN IN EXTREMITY [None]
  - ASTHENIA [None]
  - MYALGIA [None]
  - DIARRHOEA [None]
  - BLOOD GLUCOSE INCREASED [None]
  - DRUG LEVEL INCREASED [None]
